FAERS Safety Report 6309378-5 (Version None)
Quarter: 2009Q3

REPORT INFORMATION
  Report Type: 
  Country: None (occurrence: None)
  Receive Date: 20090814
  Receipt Date: 20090804
  Transmission Date: 20100115
  Serious: Yes (Hospitalization, Other)
  Sender: FDA-Public Use
  Company Number: US-ROCHE-641078

PATIENT
  Age: 87 Year
  Sex: Female

DRUGS (2)
  1. BONIVA [Suspect]
     Indication: OSTEOPOROSIS
     Dosage: OTHER INDICATION: OSTEOPENIA, STOPPED FOR TWO MONTHS
     Route: 065
     Dates: end: 20090401
  2. BONIVA [Suspect]
     Route: 065

REACTIONS (6)
  - BONE DENSITY DECREASED [None]
  - CEREBRAL HAEMATOMA [None]
  - FALL [None]
  - HIP FRACTURE [None]
  - STRESS FRACTURE [None]
  - TOOTH LOSS [None]
